FAERS Safety Report 13272802 (Version 2)
Quarter: 2017Q2

REPORT INFORMATION
  Report Type: Other
  Country: US (occurrence: US)
  Receive Date: 20170227
  Receipt Date: 20170606
  Transmission Date: 20170830
  Serious: Yes (Other)
  Sender: FDA-Public Use
  Company Number: US-ACORDA-ACO_134176_2017

PATIENT
  Age: 43 Year
  Sex: Female

DRUGS (20)
  1. KEPPRA [Concomitant]
     Active Substance: LEVETIRACETAM
     Indication: SEIZURE
     Dosage: 750 MG, BID
     Route: 065
     Dates: start: 2007
  2. GABAPENTIN. [Concomitant]
     Active Substance: GABAPENTIN
     Indication: PRODUCT USED FOR UNKNOWN INDICATION
     Dosage: UNK
     Route: 065
  3. REBIF [Concomitant]
     Active Substance: INTERFERON BETA-1A
     Indication: PRODUCT USED FOR UNKNOWN INDICATION
     Dosage: 44 MCG TIW
     Route: 065
  4. AMPYRA [Suspect]
     Active Substance: DALFAMPRIDINE
     Indication: GAIT DISTURBANCE
     Dosage: 10 MG, Q 12 HRS
     Route: 048
     Dates: start: 2010
  5. DIAZEPAM. [Concomitant]
     Active Substance: DIAZEPAM
     Indication: PRODUCT USED FOR UNKNOWN INDICATION
     Dosage: 10 MG, BID PRN
     Route: 065
  6. METHYLPREDNISOLONE. [Concomitant]
     Active Substance: METHYLPREDNISOLONE
     Indication: PRODUCT USED FOR UNKNOWN INDICATION
     Dosage: UNK
     Route: 065
  7. ONDANSETRON [Concomitant]
     Active Substance: ONDANSETRON
     Indication: PRODUCT USED FOR UNKNOWN INDICATION
     Dosage: 8 MG, Q8-12H, PRN
     Route: 065
  8. LACTULOSE. [Concomitant]
     Active Substance: LACTULOSE
     Indication: PRODUCT USED FOR UNKNOWN INDICATION
     Dosage: 10-20G Q8H, PRN
     Route: 065
  9. DILAUDID [Concomitant]
     Active Substance: HYDROMORPHONE HYDROCHLORIDE
     Indication: PRODUCT USED FOR UNKNOWN INDICATION
     Dosage: 4 MG, Q6H PRN
     Route: 065
  10. OMEPRAZOLE. [Concomitant]
     Active Substance: OMEPRAZOLE
     Indication: PRODUCT USED FOR UNKNOWN INDICATION
     Dosage: UNK
     Route: 065
  11. BACLOFEN. [Concomitant]
     Active Substance: BACLOFEN
     Indication: PRODUCT USED FOR UNKNOWN INDICATION
     Dosage: 10 MG, BID PRN
     Route: 065
  12. KEPPRA [Concomitant]
     Active Substance: LEVETIRACETAM
     Dosage: 500 MG, UNK
     Route: 042
  13. KEPPRA [Concomitant]
     Active Substance: LEVETIRACETAM
     Dosage: 750 MG, BID
     Route: 048
  14. MS CONTIN [Concomitant]
     Active Substance: MORPHINE SULFATE
     Indication: PRODUCT USED FOR UNKNOWN INDICATION
     Dosage: 30 MG, TID
     Route: 065
  15. AMPYRA [Suspect]
     Active Substance: DALFAMPRIDINE
     Dosage: 10 MG, Q 12 HRS
     Route: 048
     Dates: start: 201602, end: 201704
  16. KEPPRA [Concomitant]
     Active Substance: LEVETIRACETAM
     Dosage: 500 MG, BID
     Route: 048
     Dates: start: 201602
  17. HCTZ [Concomitant]
     Active Substance: HYDROCHLOROTHIAZIDE
     Indication: PRODUCT USED FOR UNKNOWN INDICATION
     Dosage: 25 MG, QD
     Route: 065
  18. AMPYRA [Suspect]
     Active Substance: DALFAMPRIDINE
     Indication: MULTIPLE SCLEROSIS
     Dosage: 10 MG, Q 12 HRS
     Route: 048
     Dates: start: 201602, end: 201704
  19. TECFIDERA [Concomitant]
     Active Substance: DIMETHYL FUMARATE
     Indication: PRODUCT USED FOR UNKNOWN INDICATION
     Dosage: 240 MG, BID
     Route: 065
  20. TRANSDERM SCOP [Concomitant]
     Active Substance: SCOPOLAMINE
     Indication: PRODUCT USED FOR UNKNOWN INDICATION
     Dosage: PATCH Q8D, PRN
     Route: 062

REACTIONS (7)
  - Nervousness [Recovered/Resolved]
  - Altered state of consciousness [Unknown]
  - Seizure [Unknown]
  - Vertigo [Unknown]
  - Contraindicated product administered [Unknown]
  - Vertigo [Unknown]
  - Altered state of consciousness [Unknown]

NARRATIVE: CASE EVENT DATE: 201610
